FAERS Safety Report 5735531-5 (Version None)
Quarter: 2008Q2

REPORT INFORMATION
  Report Type: 
  Country: None (occurrence: None)
  Receive Date: 20080512
  Receipt Date: 20080319
  Transmission Date: 20081010
  Serious: Yes (Death, Hospitalization)
  Sender: FDA-Public Use
  Company Number: US-PFIZER INC-2008014165

PATIENT
  Age: 45 Year
  Sex: Female
  Weight: 65.2 kg

DRUGS (1)
  1. SUTENT [Suspect]
     Indication: ADENOCARCINOMA OF THE CERVIX
     Route: 048
     Dates: start: 20071006, end: 20071214

REACTIONS (2)
  - GASTROINTESTINAL FISTULA [None]
  - VAGINAL HAEMORRHAGE [None]
